FAERS Safety Report 13041842 (Version 1)
Quarter: 2016Q4

REPORT INFORMATION
  Report Type: Spontaneous
  Country: US (occurrence: US)
  Receive Date: 20161219
  Receipt Date: 20161219
  Transmission Date: 20170207
  Serious: Yes (Hospitalization)
  Sender: FDA-Public Use
  Company Number: US-ROCHE-1310382

PATIENT
  Sex: Female

DRUGS (3)
  1. ZELBORAF [Suspect]
     Active Substance: VEMURAFENIB
     Indication: METASTASES TO CENTRAL NERVOUS SYSTEM
     Route: 065
     Dates: start: 201204, end: 201304
  2. YERVOY [Concomitant]
     Active Substance: IPILIMUMAB
     Route: 065
     Dates: start: 20121001, end: 20121203
  3. PREDNISONE. [Concomitant]
     Active Substance: PREDNISONE
     Route: 065
     Dates: end: 201209

REACTIONS (26)
  - Pyrexia [Unknown]
  - Dry eye [Unknown]
  - Hyperkeratosis [Unknown]
  - Diarrhoea [Unknown]
  - Depression [Unknown]
  - Flatulence [Unknown]
  - Chills [Unknown]
  - Nausea [Unknown]
  - Abdominal pain upper [Unknown]
  - Eye pain [Unknown]
  - Vision blurred [Unknown]
  - Vomiting [Unknown]
  - Fatigue [Unknown]
  - Pain in extremity [Unknown]
  - Headache [Unknown]
  - Decreased appetite [Unknown]
  - Abdominal distension [Unknown]
  - Ocular hyperaemia [Unknown]
  - Rash pruritic [Unknown]
  - Weight decreased [Unknown]
  - Heart rate increased [Unknown]
  - Alopecia [Unknown]
  - Acrochordon [Unknown]
  - Skin papilloma [Unknown]
  - Arthralgia [Unknown]
  - Dysgeusia [Unknown]
